FAERS Safety Report 6274762-5 (Version None)
Quarter: 2009Q3

REPORT INFORMATION
  Report Type: 
  Country: None (occurrence: None)
  Receive Date: 20090721
  Receipt Date: 20080410
  Transmission Date: 20100115
  Serious: Yes (Hospitalization, Other)
  Sender: FDA-Public Use
  Company Number: US-ASTRAZENECA-2007UW03833

PATIENT
  Age: 253 Month
  Sex: Male
  Weight: 71.7 kg

DRUGS (12)
  1. SEROQUEL [Suspect]
     Indication: BIPOLAR DISORDER
     Route: 048
     Dates: start: 20020401
  2. SEROQUEL [Suspect]
     Indication: DEPRESSION
     Route: 048
     Dates: start: 20020401
  3. SEROQUEL [Suspect]
     Indication: SCHIZOPHRENIA
     Route: 048
     Dates: start: 20020401
  4. SEROQUEL [Suspect]
     Route: 048
     Dates: start: 20050805
  5. SEROQUEL [Suspect]
     Route: 048
     Dates: start: 20050805
  6. SEROQUEL [Suspect]
     Route: 048
     Dates: start: 20050805
  7. SEROQUEL [Suspect]
     Route: 048
     Dates: start: 20060314
  8. SEROQUEL [Suspect]
     Route: 048
     Dates: start: 20060314
  9. SEROQUEL [Suspect]
     Route: 048
     Dates: start: 20060314
  10. RISPERDAL [Concomitant]
     Dates: start: 20070401, end: 20070414
  11. DEPAKOTE [Concomitant]
     Dosage: 200 MG TWO TIMES A DAY, 250 MG TWO TIMES A DAY, 500 MG THREE TIMES A DAY
     Dates: start: 20000901
  12. DEPAKOTE [Concomitant]

REACTIONS (7)
  - CONTUSION [None]
  - DRUG ABUSE [None]
  - DRUG WITHDRAWAL SYNDROME [None]
  - MUSCULOSKELETAL CHEST PAIN [None]
  - PANCREATITIS [None]
  - ROAD TRAFFIC ACCIDENT [None]
  - TYPE 2 DIABETES MELLITUS [None]
